FAERS Safety Report 19609399 (Version 5)
Quarter: 2021Q4

REPORT INFORMATION
  Report Type: Report from Study
  Country: US (occurrence: US)
  Receive Date: 20210726
  Receipt Date: 20211221
  Transmission Date: 20220303
  Serious: Yes (Other)
  Sender: FDA-Public Use
  Company Number: US-NOVARTISPH-NVSC2021US158161

PATIENT
  Sex: Female

DRUGS (1)
  1. COSENTYX [Suspect]
     Active Substance: SECUKINUMAB
     Indication: Psoriasis
     Dosage: 300 MG, QW(ONCE A WEEK FOR 5 WEEKS AND THEN Q 4 WEEKS)
     Route: 058

REACTIONS (13)
  - Cerebrovascular accident [Unknown]
  - Hormone level abnormal [Unknown]
  - Temperature intolerance [Unknown]
  - Night sweats [Unknown]
  - Menstruation irregular [Unknown]
  - Neuralgia [Not Recovered/Not Resolved]
  - Fibromyalgia [Unknown]
  - Small fibre neuropathy [Unknown]
  - Arthralgia [Unknown]
  - Feeling abnormal [Unknown]
  - Muscle twitching [Unknown]
  - Stress [Unknown]
  - COVID-19 [Unknown]
